APPROVED DRUG PRODUCT: ACCRUFER
Active Ingredient: FERRIC MALTOL
Strength: 30MG IRON
Dosage Form/Route: CAPSULE;ORAL
Application: N212320 | Product #001
Applicant: SHIELD TX UK LTD
Approved: Jul 25, 2019 | RLD: Yes | RS: Yes | Type: RX

PATENTS:
Patent 10179120 | Expires: Jan 6, 2035
Patent 9802973 | Expires: Oct 23, 2035
Patent 9248148 | Expires: Mar 29, 2031

EXCLUSIVITY:
Code: NPP | Date: Dec 19, 2028